FAERS Safety Report 8895327 (Version 2)
Quarter: 2012Q4

REPORT INFORMATION
  Report Type: 
  Country: ES (occurrence: ES)
  Receive Date: 20121108
  Receipt Date: 20121210
  Transmission Date: 20130627
  Serious: Yes (Other)
  Sender: FDA-Public Use
  Company Number: ES-PFIZER INC-2012240216

PATIENT
  Age: 39 Year
  Sex: Male

DRUGS (6)
  1. PREGABALIN [Suspect]
     Indication: CONVULSION
     Dosage: 150 mg, 2x/day (1-0-1)
     Dates: start: 20120725, end: 20120823
  2. PREGABALIN [Suspect]
     Indication: ANXIOLYTIC THERAPY
  3. ALPRAZOLAM [Suspect]
     Dosage: without medical control
  4. LORAZEPAM [Suspect]
     Dosage: without medical control
  5. LORMETAZEPAM [Suspect]
     Dosage: without medical control
  6. RISPERDAL [Concomitant]
     Dosage: 100 mg, every 14 days

REACTIONS (4)
  - Drug dependence [Unknown]
  - Meningioma [Unknown]
  - Drug abuse [Unknown]
  - Withdrawal syndrome [Unknown]
